FAERS Safety Report 4414227-6 (Version None)
Quarter: 2004Q3

REPORT INFORMATION
  Report Type: 
  Country: None (occurrence: None)
  Receive Date: 20040728
  Receipt Date: 20040726
  Transmission Date: 20050211
  Serious: Yes (Death)
  Sender: FDA-Public Use
  Company Number: TPG0T01254038

PATIENT
  Age: 85 Year
  Sex: Male

DRUGS (2)
  1. TRENANTONE (LEUPRORELIN ) [Suspect]
     Indication: PROSTATE CANCER
     Dosage: SEE IMAGE
     Route: 058
     Dates: start: 19980901, end: 19980901
  2. TRENANTONE (LEUPRORELIN ) [Suspect]
     Indication: PROSTATE CANCER
     Dosage: SEE IMAGE
     Route: 058
     Dates: start: 19980615, end: 19980911

REACTIONS (1)
  - MYOCARDIAL INFARCTION [None]
